FAERS Safety Report 8158150-2 (Version None)
Quarter: 2012Q1

REPORT INFORMATION
  Report Type: 
  Country: None (occurrence: None)
  Receive Date: 20120222
  Receipt Date: 20120216
  Transmission Date: 20120608
  Serious: Yes (Hospitalization, Congenital Anomaly, Other)
  Sender: FDA-Public Use
  Company Number: GXKR2012DE000874

PATIENT

DRUGS (6)
  1. METAFOLIN [Concomitant]
  2. METHYLPREDNISOLONE [Suspect]
     Dosage: MATERNAL DOSE: HIGH DOSAGE, NO MORE DETAILS
     Route: 064
     Dates: end: 20090205
  3. REMICADE [Suspect]
     Dosage: MATERNAL DOSE: 300 MG EVERY 8 WEEKS
     Route: 064
  4. FOLIC ACID [Concomitant]
     Dosage: MATERNAL DOSE: 0.4 MG/DAY
  5. PREDNISOLONE [Suspect]
     Dosage: MATERNAL DOSE: 15 [MG/D ]
     Route: 064
  6. AZATHIOPRINE [Suspect]
     Dosage: MATERNAL DOSE: 150 [MG/D ]/ UNTIL GW 4.3 AND 18-27.5
     Route: 064

REACTIONS (6)
  - PREMATURE BABY [None]
  - HAEMANGIOMA [None]
  - NEONATAL HYPONATRAEMIA [None]
  - ATRIAL SEPTAL DEFECT [None]
  - INGUINAL HERNIA [None]
  - FOETAL EXPOSURE DURING PREGNANCY [None]
